FAERS Safety Report 18582496 (Version 1)
Quarter: 2020Q4

REPORT INFORMATION
  Report Type: Spontaneous
  Country: FR (occurrence: FR)
  Receive Date: 20201205
  Receipt Date: 20201205
  Transmission Date: 20210114
  Serious: Yes (Life-Threatening)
  Sender: FDA-Public Use
  Company Number: FR-ACCORD-209958

PATIENT
  Age: 19 Year
  Sex: Male
  Weight: 82.5 kg

DRUGS (3)
  1. DIAZEPAM. [Suspect]
     Active Substance: DIAZEPAM
     Dosage: STRENGTH:5 MG,USUAL PRESCRIPTION 1 CP / D
     Route: 048
     Dates: start: 20200915, end: 20200915
  2. CLOZAPINE. [Suspect]
     Active Substance: CLOZAPINE
     Dosage: USUAL PRESCRIPTION 1 CP / D
     Route: 048
     Dates: start: 20200915, end: 20200915
  3. PROPRANOLOL [Suspect]
     Active Substance: PROPRANOLOL HYDROCHLORIDE
     Dosage: USUAL PRESCRIPTION 1.5 CP / D
     Route: 048
     Dates: start: 20200915, end: 20200915

REACTIONS (3)
  - Intentional overdose [Unknown]
  - Cardiogenic shock [Recovered/Resolved with Sequelae]
  - Poisoning deliberate [Unknown]

NARRATIVE: CASE EVENT DATE: 20200915
